FAERS Safety Report 7488606-7 (Version None)
Quarter: 2011Q2

REPORT INFORMATION
  Report Type: 
  Country: None (occurrence: None)
  Receive Date: 20110518
  Receipt Date: 20110510
  Transmission Date: 20111010
  Serious: Yes (Hospitalization)
  Sender: FDA-Public Use
  Company Number: A0775726A

PATIENT
  Age: 28 Year
  Sex: Female
  Weight: 136.4 kg

DRUGS (7)
  1. LUVOX [Concomitant]
  2. RISPERDAL [Concomitant]
  3. AVANDIA [Suspect]
     Indication: TYPE 2 DIABETES MELLITUS
     Dosage: 8MG PER DAY
     Route: 048
     Dates: start: 20050501, end: 20070524
  4. KLONOPIN [Concomitant]
  5. AVANDAMET [Suspect]
     Indication: TYPE 2 DIABETES MELLITUS
     Route: 048
     Dates: start: 20030701, end: 20050501
  6. PAXIL CR [Concomitant]
     Dates: end: 20041201
  7. WELCHOL [Concomitant]

REACTIONS (7)
  - ANXIETY [None]
  - DEEP VEIN THROMBOSIS [None]
  - CARDIOMEGALY [None]
  - MYOCARDIAL ISCHAEMIA [None]
  - MYOCARDIAL INFARCTION [None]
  - PULMONARY EMBOLISM [None]
  - DRUG EXPOSURE DURING PREGNANCY [None]
